FAERS Safety Report 7288027-6 (Version None)
Quarter: 2011Q1

REPORT INFORMATION
  Report Type: 
  Country: None (occurrence: None)
  Receive Date: 20110211
  Receipt Date: 20110128
  Transmission Date: 20110831
  Serious: Yes (Disabling, Other)
  Sender: FDA-Public Use
  Company Number: JP-BAYER-2011-006165

PATIENT
  Age: 67 Year
  Sex: Male

DRUGS (4)
  1. NEXAVAR [Suspect]
     Indication: HEPATIC NEOPLASM MALIGNANT
     Dosage: 400 MG, BID
     Route: 048
     Dates: start: 20101211, end: 20101218
  2. WARFARIN [Concomitant]
     Indication: THROMBOSIS PROPHYLAXIS
     Dosage: DAILY DOSE 3 MG
     Route: 048
  3. NEXAVAR [Suspect]
     Dosage: DAILY DOSE 800 MG
     Route: 048
     Dates: start: 20101219, end: 20110118
  4. PROPETO [Concomitant]
     Dosage: UNK
     Route: 061
     Dates: start: 20101122

REACTIONS (6)
  - DYSARTHRIA [None]
  - DISTURBANCE IN ATTENTION [None]
  - HEPATIC ENCEPHALOPATHY [None]
  - DECREASED APPETITE [None]
  - JAUNDICE [None]
  - FATIGUE [None]
